FAERS Safety Report 12544148 (Version 2)
Quarter: 2016Q3

REPORT INFORMATION
  Report Type: Spontaneous
  Country: US (occurrence: US)
  Receive Date: 20160711
  Receipt Date: 20160811
  Transmission Date: 20161109
  Serious: Yes (Hospitalization, Other)
  Sender: FDA-Public Use
  Company Number: US-ZYDUS-011520

PATIENT
  Age: 72 Year
  Sex: Male

DRUGS (2)
  1. OMEPRAZOLE. [Suspect]
     Active Substance: OMEPRAZOLE
     Indication: GASTROOESOPHAGEAL REFLUX DISEASE
     Route: 048
     Dates: end: 20151206
  2. OMEPRAZOLE. [Suspect]
     Active Substance: OMEPRAZOLE
     Indication: GASTROOESOPHAGEAL REFLUX DISEASE
     Dates: start: 1995

REACTIONS (15)
  - Balance disorder [Not Recovered/Not Resolved]
  - Furuncle [Not Recovered/Not Resolved]
  - Pulse absent [Recovered/Resolved]
  - Kidney infection [Recovered/Resolved]
  - Skin discolouration [Not Recovered/Not Resolved]
  - Fluid retention [Recovered/Resolved]
  - Hypoaesthesia [Not Recovered/Not Resolved]
  - Peripheral swelling [Recovered/Resolved]
  - Blister [Recovering/Resolving]
  - Petit mal epilepsy [Not Recovered/Not Resolved]
  - Fall [Recovered/Resolved]
  - Urinary retention [Recovered/Resolved]
  - Joint swelling [Not Recovered/Not Resolved]
  - Compulsive lip biting [Not Recovered/Not Resolved]
  - Rash [Recovered/Resolved]

NARRATIVE: CASE EVENT DATE: 1995
